FAERS Safety Report 24596103 (Version 2)
Quarter: 2024Q4

REPORT INFORMATION
  Report Type: Spontaneous
  Country: DE (occurrence: DE)
  Receive Date: 20241110
  Receipt Date: 20241219
  Transmission Date: 20250115
  Serious: Yes (Hospitalization)
  Sender: AUROBINDO
  Company Number: DE-009507513-2410DEU010155

PATIENT
  Sex: Male
  Weight: 63 kg

DRUGS (4)
  1. CARBOPLATIN [Suspect]
     Active Substance: CARBOPLATIN
     Indication: Non-small cell lung cancer
     Dosage: 466 MILLIGRAM
     Route: 065
     Dates: start: 20240613, end: 20240905
  2. PACLITAXEL [Suspect]
     Active Substance: PACLITAXEL
     Indication: Non-small cell lung cancer
     Dosage: 175 MILLIGRAM
     Route: 065
     Dates: start: 20240613, end: 20240912
  3. PEMBROLIZUMAB [Suspect]
     Active Substance: PEMBROLIZUMAB
     Indication: Non-small cell lung cancer
     Dosage: 200 MILLIGRAM
     Route: 065
     Dates: start: 20240613, end: 20240926
  4. PEMBROLIZUMAB [Suspect]
     Active Substance: PEMBROLIZUMAB
     Dosage: 200 MILLIGRAM
     Route: 065
     Dates: start: 20241017

REACTIONS (4)
  - Chronic obstructive pulmonary disease [Recovered/Resolved]
  - Dizziness [Recovered/Resolved]
  - Mucosal inflammation [Recovered/Resolved]
  - Otitis externa fungal [Recovered/Resolved]

NARRATIVE: CASE EVENT DATE: 20241004
